FAERS Safety Report 5659703-3 (Version None)
Quarter: 2008Q1

REPORT INFORMATION
  Report Type: 
  Country: None (occurrence: None)
  Receive Date: 20080311
  Receipt Date: 20070626
  Transmission Date: 20080703
  Serious: No
  Sender: FDA-Public Use
  Company Number: US-BAYER-200712009BCC

PATIENT
  Age: 36 Year
  Sex: Female
  Weight: 122 kg

DRUGS (1)
  1. ALEVE [Suspect]
     Indication: MUSCLE SPASMS
     Route: 048
     Dates: start: 20070624

REACTIONS (1)
  - SELF-INDUCED VOMITING [None]
